FAERS Safety Report 17398952 (Version 1)
Quarter: 2020Q1

REPORT INFORMATION
  Report Type: Report from Study
  Country: US (occurrence: US)
  Receive Date: 20200210
  Receipt Date: 20200210
  Transmission Date: 20200409
  Serious: Yes (Death)
  Sender: FDA-Public Use
  Company Number: US-EXELIXIS-CABO-20027288

PATIENT
  Sex: Female

DRUGS (9)
  1. STIVARGA [Concomitant]
     Active Substance: REGORAFENIB
  2. DOXYCYCLINE. [Concomitant]
     Active Substance: DOXYCYCLINE
  3. CABOMETYX [Suspect]
     Active Substance: CABOZANTINIB S-MALATE
     Dosage: 40 MG, QD
     Route: 048
     Dates: end: 20191208
  4. TEMAZEPAM. [Concomitant]
     Active Substance: TEMAZEPAM
  5. LOSARTAN. [Concomitant]
     Active Substance: LOSARTAN
  6. METFORMIN [Concomitant]
     Active Substance: METFORMIN HYDROCHLORIDE
  7. SIMVASTATIN. [Concomitant]
     Active Substance: SIMVASTATIN
  8. CABOMETYX [Suspect]
     Active Substance: CABOZANTINIB S-MALATE
     Indication: RENAL CELL CARCINOMA
     Dosage: 60 MG, QD
     Route: 048
     Dates: start: 20190710
  9. GINGER ROOT [Concomitant]
     Active Substance: GINGER

REACTIONS (1)
  - Death [Fatal]
